FAERS Safety Report 16063277 (Version 2)
Quarter: 2019Q2

REPORT INFORMATION
  Report Type: Spontaneous
  Country: US (occurrence: US)
  Receive Date: 20190312
  Receipt Date: 20190507
  Transmission Date: 20190711
  Serious: No
  Sender: FDA-Public Use
  Company Number: US-CELGENEUS-USA-20190300989

PATIENT
  Sex: Female

DRUGS (2)
  1. OTEZLA [Suspect]
     Active Substance: APREMILAST
     Indication: PSORIATIC ARTHROPATHY
     Dosage: 60 MILLIGRAM
     Route: 048
     Dates: start: 20190115
  2. OTEZLA [Suspect]
     Active Substance: APREMILAST
     Dosage: 60 MILLIGRAM
     Route: 048
     Dates: start: 20190222

REACTIONS (9)
  - Musculoskeletal pain [Unknown]
  - Weight decreased [Unknown]
  - Faeces discoloured [Unknown]
  - Pain in extremity [Unknown]
  - Headache [Unknown]
  - Nausea [Not Recovered/Not Resolved]
  - Abnormal faeces [Unknown]
  - Diarrhoea [Unknown]
  - Decreased appetite [Unknown]

NARRATIVE: CASE EVENT DATE: 2019
